FAERS Safety Report 5285976-5 (Version None)
Quarter: 2007Q2

REPORT INFORMATION
  Report Type: 
  Country: None (occurrence: None)
  Receive Date: 20070404
  Receipt Date: 20070402
  Transmission Date: 20071010
  Serious: Yes (Hospitalization)
  Sender: FDA-Public Use
  Company Number: FR-BRISTOL-MYERS SQUIBB COMPANY-13724885

PATIENT
  Age: 73 Year
  Sex: Male
  Weight: 101 kg

DRUGS (3)
  1. ELISOR TABS [Suspect]
     Route: 048
  2. AVANDAMET [Suspect]
     Dosage: 2MG/500MG
     Dates: start: 20061101, end: 20070211
  3. GLYBURIDE [Suspect]

REACTIONS (4)
  - ASCITES [None]
  - FLUID RETENTION [None]
  - OEDEMA PERIPHERAL [None]
  - WEIGHT INCREASED [None]
